APPROVED DRUG PRODUCT: CAPECITABINE
Active Ingredient: CAPECITABINE
Strength: 500MG
Dosage Form/Route: TABLET;ORAL
Application: A204741 | Product #002
Applicant: AMNEAL PHARMACEUTICALS
Approved: Feb 28, 2017 | RLD: No | RS: No | Type: DISCN